FAERS Safety Report 4518538-5 (Version None)
Quarter: 2004Q4

REPORT INFORMATION
  Report Type: 
  Country: None (occurrence: None)
  Receive Date: 20041203
  Receipt Date: 20041124
  Transmission Date: 20050328
  Serious: Yes (Life-Threatening, Disabling)
  Sender: FDA-Public Use
  Company Number: US-MERCK-0411USA03990

PATIENT
  Age: 58 Year
  Sex: Male

DRUGS (3)
  1. VIOXX [Suspect]
     Indication: ARTHRITIS
     Route: 048
     Dates: start: 19990901, end: 20030801
  2. PRILOSEC [Concomitant]
     Route: 065
  3. CLARINEX [Concomitant]
     Route: 065

REACTIONS (7)
  - BURSITIS [None]
  - CYST [None]
  - DYSPNOEA [None]
  - FATIGUE [None]
  - JOINT SWELLING [None]
  - MUSCULAR WEAKNESS [None]
  - TACHYCARDIA [None]
